FAERS Safety Report 23753078 (Version 1)
Quarter: 2024Q2

REPORT INFORMATION
  Report Type: Spontaneous
  Country: DE (occurrence: DE)
  Receive Date: 20240417
  Receipt Date: 20240417
  Transmission Date: 20240715
  Serious: Yes (Other)
  Sender: FDA-Public Use
  Company Number: DE-BIOVITRUM-2024-DE-005612

PATIENT
  Age: 38 Year
  Sex: Female

DRUGS (2)
  1. DOPTELET [Suspect]
     Active Substance: AVATROMBOPAG MALEATE
     Indication: Immune thrombocytopenia
     Dosage: STARTING DOSE 20 MG-DOSE CHANGE DEPENDING ON PLATELET COUNT
     Dates: start: 20230713
  2. DOPTELET [Suspect]
     Active Substance: AVATROMBOPAG MALEATE
     Dosage: DOPTELET 20 MG EVERY 2ND DAY,
     Dates: start: 20220805, end: 20230508

REACTIONS (4)
  - Exposure during pregnancy [Recovered/Resolved]
  - Oedema peripheral [Unknown]
  - Intra-abdominal haematoma [Unknown]
  - Premature rupture of membranes [Unknown]
